FAERS Safety Report 6293597-0 (Version None)
Quarter: 2009Q3

REPORT INFORMATION
  Report Type: 
  Country: None (occurrence: None)
  Receive Date: 20090729
  Receipt Date: 20090721
  Transmission Date: 20100115
  Serious: Yes (Life-Threatening)
  Sender: FDA-Public Use
  Company Number: OMPQ-PR-0907S-0674

PATIENT
  Age: 49 Year
  Sex: Female

DRUGS (1)
  1. OMNIPAQUE 300 [Suspect]
     Indication: ABDOMINAL ABSCESS
     Dosage: 150 ML, SINGLE DOSE, I.V.
     Route: 042
     Dates: start: 20090717, end: 20090717

REACTIONS (1)
  - ACUTE PULMONARY OEDEMA [None]
